FAERS Safety Report 23954878 (Version 2)
Quarter: 2024Q2

REPORT INFORMATION
  Report Type: Spontaneous
  Country: IE (occurrence: IE)
  Receive Date: 20240610
  Receipt Date: 20240619
  Transmission Date: 20240716
  Serious: Yes (Life-Threatening, Hospitalization, Disabling, Other)
  Sender: FDA-Public Use
  Company Number: None

PATIENT
  Age: 42 Year
  Sex: Male

DRUGS (16)
  1. ACETAMINOPHEN\CAFFEINE\CODEINE PHOSPHATE [Suspect]
     Active Substance: ACETAMINOPHEN\CAFFEINE\CODEINE PHOSPHATE
     Indication: Analgesic therapy
     Dosage: TAKE TWO THREE TIMES A DAY WHEN REQUIRED.
     Route: 048
     Dates: start: 20210311
  2. ACETAMINOPHEN\CAFFEINE\CODEINE PHOSPHATE [Suspect]
     Active Substance: ACETAMINOPHEN\CAFFEINE\CODEINE PHOSPHATE
     Dosage: TAKEN TWO THREE TIMES A DAY WHEN REQUIRED.
     Route: 048
     Dates: start: 20201125
  3. ACETAMINOPHEN\CAFFEINE\CODEINE PHOSPHATE [Suspect]
     Active Substance: ACETAMINOPHEN\CAFFEINE\CODEINE PHOSPHATE
     Dosage: TAKE TWO THREE TIMES A DAY WHEN REQUIRED.
     Route: 048
     Dates: start: 20210706
  4. ACETAMINOPHEN\CAFFEINE\CODEINE PHOSPHATE [Suspect]
     Active Substance: ACETAMINOPHEN\CAFFEINE\CODEINE PHOSPHATE
     Dosage: TAKE TWO THREE TIMES A DAY WHEN REQUIRED.
     Route: 048
     Dates: start: 20211001
  5. ACETAMINOPHEN\CAFFEINE\CODEINE PHOSPHATE [Suspect]
     Active Substance: ACETAMINOPHEN\CAFFEINE\CODEINE PHOSPHATE
     Dosage: TAKE TWO THREE TIMES A DAY WHEN REQUIRED.
     Route: 048
     Dates: start: 20210217
  6. ACETAMINOPHEN\CAFFEINE\CODEINE PHOSPHATE [Suspect]
     Active Substance: ACETAMINOPHEN\CAFFEINE\CODEINE PHOSPHATE
     Dosage: TAKE TWO THREE TIMES A DAY WHEN REQUIRED.
     Route: 048
     Dates: start: 20210828
  7. ACETAMINOPHEN\CAFFEINE\CODEINE PHOSPHATE [Suspect]
     Active Substance: ACETAMINOPHEN\CAFFEINE\CODEINE PHOSPHATE
     Dosage: TAKE TWO THREE TIMES A DAY WHEN REQUIRED.
     Route: 048
     Dates: start: 20210408
  8. PREDNISOLONE [Suspect]
     Active Substance: PREDNISOLONE
     Indication: Product used for unknown indication
     Dosage: ^TAKE 6 TABLETS AS A SINGLE DOSE IN THE MORNING FOR 5 DAYS^ 6 DF, QD (IN MORNING)
     Route: 048
     Dates: start: 20210428
  9. FLUTICASONE FUROATE [Suspect]
     Active Substance: FLUTICASONE FUROATE
     Indication: Analgesic therapy
     Route: 045
     Dates: start: 20210816
  10. FLUTICASONE FUROATE [Suspect]
     Active Substance: FLUTICASONE FUROATE
     Route: 045
     Dates: start: 20210604
  11. FLUTICASONE FUROATE [Suspect]
     Active Substance: FLUTICASONE FUROATE
     Dosage: DOSAGE WAS REPORTED AS FOLLOWED IN ACCORDANCE WITH THE SUPPLIED ITEM PACKAGED LEAFLET. (10 DS)
     Route: 045
     Dates: start: 20201125, end: 20210816
  12. FLUTICASONE FUROATE [Suspect]
     Active Substance: FLUTICASONE FUROATE
     Route: 045
     Dates: start: 20210311
  13. FLUTICASONE FUROATE [Suspect]
     Active Substance: FLUTICASONE FUROATE
     Route: 045
     Dates: start: 20210428, end: 20210816
  14. FLUTICASONE FUROATE [Suspect]
     Active Substance: FLUTICASONE FUROATE
     Route: 045
     Dates: start: 20210126
  15. FLUTICASONE FUROATE [Suspect]
     Active Substance: FLUTICASONE FUROATE
     Route: 045
     Dates: start: 20210630
  16. METFORMIN [Suspect]
     Active Substance: METFORMIN HYDROCHLORIDE
     Indication: Type 2 diabetes mellitus
     Dosage: 500 MG, BID

REACTIONS (10)
  - Type 2 diabetes mellitus [Not Recovered/Not Resolved]
  - Feeling hot [Unknown]
  - Food craving [Unknown]
  - Malaise [Unknown]
  - Paraesthesia [Unknown]
  - Polydipsia [Unknown]
  - Nausea [Unknown]
  - Hyperhidrosis [Unknown]
  - Blood glucose increased [Unknown]
  - Fungal infection [Unknown]

NARRATIVE: CASE EVENT DATE: 20211011
